FAERS Safety Report 12778999 (Version 1)
Quarter: 2016Q3

REPORT INFORMATION
  Report Type: Spontaneous
  Country: US (occurrence: US)
  Receive Date: 20160926
  Receipt Date: 20160926
  Transmission Date: 20161109
  Serious: No
  Sender: FDA-Public Use
  Company Number: US-JAZZ-2016-US-011316

PATIENT
  Sex: Female

DRUGS (9)
  1. MONTELUKAST SODIUM. [Concomitant]
     Active Substance: MONTELUKAST SODIUM
  2. METHYLPHENIDATE. [Concomitant]
     Active Substance: METHYLPHENIDATE
  3. ADVIL [Concomitant]
     Active Substance: IBUPROFEN
  4. EPIPEN [Concomitant]
     Active Substance: EPINEPHRINE
  5. METHYLPHENIDATE ER [Concomitant]
     Active Substance: METHYLPHENIDATE
  6. ARMOUR THYROID [Concomitant]
     Active Substance: THYROID, PORCINE
  7. TYLENOL [Concomitant]
     Active Substance: ACETAMINOPHEN
  8. XYREM [Suspect]
     Active Substance: SODIUM OXYBATE
     Indication: NARCOLEPSY
     Dosage: 2.25 G, BID
     Route: 048
     Dates: start: 201605
  9. CLARITIN [Concomitant]
     Active Substance: LORATADINE

REACTIONS (3)
  - Dizziness [Unknown]
  - Bradyphrenia [Not Recovered/Not Resolved]
  - Stress at work [Unknown]

NARRATIVE: CASE EVENT DATE: 2016
